FAERS Safety Report 8518953-9 (Version None)
Quarter: 2012Q3

REPORT INFORMATION
  Report Type: 
  Country: None (occurrence: None)
  Receive Date: 20120718
  Receipt Date: 20120618
  Transmission Date: 20120928
  Serious: Yes (Hospitalization)
  Sender: FDA-Public Use
  Company Number: ES-VIIV HEALTHCARE LIMITED-B0810043A

PATIENT
  Sex: Female
  Weight: 45 kg

DRUGS (1)
  1. ABACAVIR SULFATE/LAMIVUDINE [Suspect]
     Indication: HIV INFECTION
     Route: 048
     Dates: start: 20120515, end: 20120531

REACTIONS (8)
  - HYPERSENSITIVITY [None]
  - NIGHT SWEATS [None]
  - VOMITING [None]
  - RHINORRHOEA [None]
  - NAUSEA [None]
  - PYREXIA [None]
  - LYMPHADENOPATHY [None]
  - COUGH [None]
